FAERS Safety Report 7684051-X (Version None)
Quarter: 2011Q3

REPORT INFORMATION
  Report Type: 
  Country: None (occurrence: None)
  Receive Date: 20110815
  Receipt Date: 20110811
  Transmission Date: 20111222
  Serious: Yes (Life-Threatening, Other)
  Sender: FDA-Public Use
  Company Number: JP-BRACCO-005026

PATIENT
  Sex: Male
  Weight: 65 kg

DRUGS (6)
  1. IOPAMIDOL [Suspect]
     Indication: ARTERIOSCLEROSIS OBLITERANS
     Dosage: 3.3 ML/SEC
     Route: 042
     Dates: start: 20110708, end: 20110708
  2. DIOVAN [Concomitant]
  3. ALLOPURINOL [Concomitant]
  4. IOPAMIDOL [Suspect]
     Indication: COMPUTERISED TOMOGRAM
     Dosage: 3.3 ML/SEC
     Route: 042
     Dates: start: 20110708, end: 20110708
  5. ASPIRIN [Concomitant]
  6. AMARYL [Concomitant]

REACTIONS (3)
  - BLOOD PRESSURE DECREASED [None]
  - FEELING ABNORMAL [None]
  - EYELID OEDEMA [None]
